FAERS Safety Report 7990206-7 (Version None)
Quarter: 2011Q4

REPORT INFORMATION
  Report Type: 
  Country: None (occurrence: None)
  Receive Date: 20111219
  Receipt Date: 20111215
  Transmission Date: 20120403
  Serious: Yes (Other)
  Sender: FDA-Public Use
  Company Number: SE-PFIZER INC-2011305966

PATIENT
  Age: 67 Year
  Sex: Female

DRUGS (1)
  1. MEDROL [Suspect]
     Indication: ALOPECIA
     Dosage: UNK
     Route: 048
     Dates: start: 20101201

REACTIONS (4)
  - PNEUMONIA [None]
  - WEIGHT INCREASED [None]
  - GROWTH OF EYELASHES [None]
  - PRODUCTIVE COUGH [None]
